FAERS Safety Report 8443208-0 (Version None)
Quarter: 2012Q2

REPORT INFORMATION
  Report Type: 
  Country: None (occurrence: None)
  Receive Date: 20120617
  Receipt Date: 20120606
  Transmission Date: 20120825
  Serious: Yes (Life-Threatening, Other)
  Sender: FDA-Public Use
  Company Number: JP-VERTEX PHARMACEUTICALS INC.-AE-2012-005925

PATIENT
  Age: 23 Year
  Sex: Male

DRUGS (10)
  1. RIBAVIRIN [Concomitant]
     Indication: HEPATITIS C
     Route: 048
     Dates: start: 20120302
  2. SELBEX [Concomitant]
     Route: 048
     Dates: start: 20111021
  3. LANSOPRAZOLE [Concomitant]
     Route: 048
     Dates: start: 20120303
  4. PEGINTERFERON ALFA-2B [Concomitant]
     Indication: HEPATITIS C
     Route: 051
     Dates: start: 20120302, end: 20120316
  5. PEGINTERFERON ALFA-2B [Concomitant]
     Route: 051
     Dates: start: 20120323
  6. TELAVIC (TELAPREVIR) [Suspect]
     Indication: HEPATITIS C
     Route: 048
     Dates: start: 20120302, end: 20120524
  7. PRIMPERAN TAB [Concomitant]
     Route: 048
     Dates: start: 20120305
  8. TRAVELMIN [Concomitant]
     Route: 048
     Dates: start: 20120315
  9. LOBU [Concomitant]
     Route: 048
     Dates: start: 20120303
  10. AZULFIDINE [Concomitant]
     Route: 048
     Dates: start: 20111021

REACTIONS (3)
  - WHITE BLOOD CELL COUNT DECREASED [None]
  - DEPRESSION [None]
  - NEUTROPHIL COUNT DECREASED [None]
